FAERS Safety Report 7683704-7 (Version None)
Quarter: 2011Q3

REPORT INFORMATION
  Report Type: 
  Country: None (occurrence: None)
  Receive Date: 20110815
  Receipt Date: 20110808
  Transmission Date: 20111222
  Serious: Yes (Death)
  Sender: FDA-Public Use
  Company Number: IT-BAXTER-2011BH026045

PATIENT

DRUGS (8)
  1. PREDNISONE [Suspect]
     Indication: HODGKIN'S DISEASE
     Route: 065
  2. CYCLOPHOSPHAMIDE [Suspect]
     Indication: HODGKIN'S DISEASE
     Route: 065
  3. BLEOMYCIN [Suspect]
     Indication: HODGKIN'S DISEASE
     Route: 065
  4. IFOSFAMIDE [Suspect]
     Indication: HODGKIN'S DISEASE
     Route: 065
  5. VINCRISTINE [Suspect]
     Indication: HODGKIN'S DISEASE
     Route: 065
  6. DOXORUBICIN HCL [Suspect]
     Indication: HODGKIN'S DISEASE
     Route: 065
  7. PROCARBAZINE HYDROCHLORIDE [Suspect]
     Indication: HODGKIN'S DISEASE
     Route: 065
  8. ETOPOSIDE [Suspect]
     Indication: HODGKIN'S DISEASE
     Route: 065

REACTIONS (1)
  - TOXICITY TO VARIOUS AGENTS [None]
